FAERS Safety Report 7760823-8 (Version None)
Quarter: 2011Q3

REPORT INFORMATION
  Report Type: 
  Country: None (occurrence: None)
  Receive Date: 20110919
  Receipt Date: 20110915
  Transmission Date: 20111222
  Serious: Yes (Other)
  Sender: FDA-Public Use
  Company Number: SE-ABBOTT-11P-150-0854973-00

PATIENT
  Sex: Male

DRUGS (1)
  1. ZEMPLAR [Suspect]
     Indication: PRODUCT USED FOR UNKNOWN INDICATION
     Dosage: FORM STRENGTH IS 5 MICROGRAM/MILLILITER

REACTIONS (2)
  - ATRIAL FIBRILLATION [None]
  - GASTROINTESTINAL HAEMORRHAGE [None]
